FAERS Safety Report 9978135 (Version 1)
Quarter: 2014Q1

REPORT INFORMATION
  Report Type: Spontaneous
  Country: US (occurrence: US)
  Receive Date: 20140306
  Receipt Date: 20140306
  Transmission Date: 20141002
  Serious: No
  Sender: FDA-Public Use
  Company Number: US-PFIZER INC-2014064718

PATIENT
  Sex: Male

DRUGS (1)
  1. CELEBREX [Suspect]
     Indication: NECK INJURY
     Dosage: 100MG (FREQUENCY UNKNOWN)

REACTIONS (3)
  - Intentional drug misuse [Unknown]
  - Off label use [Unknown]
  - Pain [Unknown]
